FAERS Safety Report 14053796 (Version 1)
Quarter: 2017Q4

REPORT INFORMATION
  Report Type: Spontaneous
  Country: NO (occurrence: NO)
  Receive Date: 20171006
  Receipt Date: 20171006
  Transmission Date: 20180321
  Serious: Yes (Other)
  Sender: FDA-Public Use
  Company Number: NO-ALKABELLO-2017AA003302

PATIENT
  Age: 12 Year
  Sex: Male

DRUGS (2)
  1. ACARIZAX 12 SQ-HDM SMELTETABLETT [Suspect]
     Active Substance: DERMATOPHAGOIDES FARINAE\DERMATOPHAGOIDES PTERONYSSINUS
     Dates: start: 201709
  2. ZYRTEC [Concomitant]
     Active Substance: CETIRIZINE HYDROCHLORIDE
     Route: 048
     Dates: start: 20170927

REACTIONS (8)
  - Off label use [Not Recovered/Not Resolved]
  - Pruritus generalised [Recovered/Resolved]
  - Erythema [Recovered/Resolved]
  - Dysphonia [Recovered/Resolved]
  - Abdominal pain upper [None]
  - Diarrhoea [Unknown]
  - Drug administered to patient of inappropriate age [Not Recovered/Not Resolved]
  - Abdominal pain [Unknown]

NARRATIVE: CASE EVENT DATE: 201709
